FAERS Safety Report 21788537 (Version 1)
Quarter: 2022Q4

REPORT INFORMATION
  Report Type: Spontaneous
  Country: ES (occurrence: ES)
  Receive Date: 20221228
  Receipt Date: 20221228
  Transmission Date: 20230113
  Serious: Yes (Life-Threatening)
  Sender: FDA-Public Use
  Company Number: None

PATIENT
  Age: 83 Year
  Sex: Female

DRUGS (7)
  1. OMEPRAZOLE [Suspect]
     Active Substance: OMEPRAZOLE
     Indication: Product used for unknown indication
     Dosage: 20.0 MG A-DE, EFG, 56 CAPSULES, THERAPY END DATE :NASK
     Route: 065
     Dates: start: 20121214
  2. ATORVASTATINA DAVUR [Concomitant]
     Indication: Diabetes mellitus
     Dosage: 30.0 MG DE, 28 TABLETS
     Route: 065
     Dates: start: 20191015
  3. TRUSOPT [Concomitant]
     Active Substance: DORZOLAMIDE HYDROCHLORIDE
     Indication: Glaucoma
     Dosage: 1.0 GTS W/8 HOURS,1 BOTTLE OF 5 ML
     Route: 065
     Dates: start: 20220203
  4. METFORMIN HYDROCHLORIDE [Concomitant]
     Active Substance: METFORMIN HYDROCHLORIDE
     Indication: Diabetes mellitus
     Dosage: 850.0 MG DECE, EFG, 50 TABLETS,
     Route: 065
     Dates: start: 20100928
  5. VENLAFAXINA RETARD CINFAMED [Concomitant]
     Indication: Depression
     Dosage: 150.0 MG DE, EFG, 30 CAPSULES,
     Route: 065
     Dates: start: 20220519
  6. ALPHAGAN P [Concomitant]
     Active Substance: BRIMONIDINE TARTRATE
     Indication: Glaucoma
     Dosage: 1.0 GTS C/12 H, 1 BOTTLE OF 5 ML,
     Route: 065
     Dates: start: 20211221
  7. PARACETAMOL CINFA [Concomitant]
     Indication: Pain
     Dosage: 1.0 G DECOCE, EFG, 40 TABLETS,
     Route: 065
     Dates: start: 20210216

REACTIONS (1)
  - Hypomagnesaemia [Not Recovered/Not Resolved]

NARRATIVE: CASE EVENT DATE: 20220801
